FAERS Safety Report 15608276 (Version 1)
Quarter: 2018Q4

REPORT INFORMATION
  Report Type: Spontaneous
  Country: FR (occurrence: FR)
  Receive Date: 20181112
  Receipt Date: 20181112
  Transmission Date: 20190205
  Serious: Yes (Other)
  Sender: FDA-Public Use
  Company Number: FR-BAYER-2018-204371

PATIENT
  Age: 79 Year
  Sex: Female

DRUGS (3)
  1. SORAFENIB (RAF KINASE INHIBITOR) [Suspect]
     Active Substance: SORAFENIB
     Indication: METASTASES TO LIVER
     Dosage: UNK
  2. SORAFENIB (RAF KINASE INHIBITOR) [Suspect]
     Active Substance: SORAFENIB
     Indication: METASTASES TO LIVER
     Dosage: UNK
  3. PEMBROLIZUMAB. [Concomitant]
     Active Substance: PEMBROLIZUMAB

REACTIONS (11)
  - Dyspnoea [None]
  - Asthenia [None]
  - Pallor [None]
  - C-reactive protein increased [Recovering/Resolving]
  - Polymyalgia rheumatica [None]
  - Autoimmune haemolytic anaemia [None]
  - Anaemia [None]
  - Haemolysis [None]
  - Haemoglobin decreased [None]
  - Inflammatory pain [Recovering/Resolving]
  - Macrocytosis [None]
